FAERS Safety Report 16962026 (Version 1)
Quarter: 2019Q4

REPORT INFORMATION
  Report Type: Spontaneous
  Country: BR (occurrence: BR)
  Receive Date: 20191025
  Receipt Date: 20191025
  Transmission Date: 20200122
  Serious: Yes (Other)
  Sender: FDA-Public Use
  Company Number: BR-ALFASIGMA USA, INC.-2076043

PATIENT
  Age: 72 Year
  Sex: Female
  Weight: 69.14 kg

DRUGS (1)
  1. ZELNORM [Suspect]
     Active Substance: TEGASEROD MALEATE

REACTIONS (4)
  - Hypercholesterolaemia [Unknown]
  - Hernia hiatus repair [Unknown]
  - Nausea [Unknown]
  - Carotid artery disease [Unknown]

NARRATIVE: CASE EVENT DATE: 20190822
